FAERS Safety Report 7773696-4 (Version None)
Quarter: 2011Q3

REPORT INFORMATION
  Report Type: 
  Country: None (occurrence: None)
  Receive Date: 20110920
  Receipt Date: 20110907
  Transmission Date: 20111222
  Serious: Yes (Other)
  Sender: FDA-Public Use
  Company Number: US-ACCORD-010582

PATIENT
  Age: 25 Year
  Sex: Female

DRUGS (7)
  1. LEVOTHYROXINE SODIUM [Concomitant]
  2. VENLAFAXINE [Concomitant]
  3. TRAZODONE HCL [Concomitant]
  4. HYDROCODONE W/ACETAMINOPHEN(HYDROCODONE W/ACETAMINOPHEN) [Concomitant]
  5. PROMETHAZINE [Concomitant]
  6. MYCOPHENOLATE MOFETIL [Suspect]
     Dosage: 500.00-MG-2.00 TIMES PER-1.0 DAYS/ ORAL
     Route: 048
     Dates: start: 20110718
  7. NOVOLOG(NOVOLOG) [Concomitant]

REACTIONS (1)
  - HEPATOMEGALY [None]
